FAERS Safety Report 6490595-9 (Version None)
Quarter: 2009Q4

REPORT INFORMATION
  Report Type: 
  Country: None (occurrence: None)
  Receive Date: 20091124
  Receipt Date: 20090602
  Transmission Date: 20100525
  Serious: Yes (Other)
  Sender: FDA-Public Use
  Company Number: 284309

PATIENT
  Sex: Female

DRUGS (2)
  1. HERCEPTIN [Suspect]
     Indication: BREAST CANCER STAGE II
     Dosage: INTERVENOUS
     Route: 042
     Dates: start: 20070101
  2. HERCEPTIN [Suspect]
     Indication: BREAST CANCER STAGE III
     Dosage: INTERVENOUS
     Route: 042
     Dates: start: 20070101

REACTIONS (1)
  - CARDIAC DISORDER [None]
